FAERS Safety Report 10206931 (Version 1)
Quarter: 2014Q2

REPORT INFORMATION
  Report Type: Spontaneous
  Country: US (occurrence: None)
  Receive Date: 20140528
  Receipt Date: 20140528
  Transmission Date: 20141212
  Serious: Yes (Disabling)
  Sender: FDA-Public Use
  Company Number: None

PATIENT
  Age: 57 Year
  Sex: Female
  Weight: 68.95 kg

DRUGS (1)
  1. LOSARTAN POTASSIUM [Suspect]
     Route: 048

REACTIONS (3)
  - Groin pain [None]
  - Insomnia [None]
  - Movement disorder [None]
